FAERS Safety Report 4460879-4 (Version None)
Quarter: 2004Q3

REPORT INFORMATION
  Report Type: 
  Country: None (occurrence: None)
  Receive Date: 20040928
  Receipt Date: 20040603
  Transmission Date: 20050211
  Serious: No
  Sender: FDA-Public Use
  Company Number: US-GLAXOSMITHKLINE-A0513287A

PATIENT
  Age: 60 Year
  Sex: Female

DRUGS (4)
  1. ADVAIR DISKUS 100/50 [Suspect]
     Indication: ASTHMA
     Route: 055
  2. FLONASE [Suspect]
     Route: 045
     Dates: start: 20020101
  3. ALBUTEROL [Concomitant]
  4. OXYGEN [Concomitant]
     Route: 045

REACTIONS (2)
  - EPISTAXIS [None]
  - MUSCLE CRAMP [None]
